FAERS Safety Report 8895228 (Version 1)
Quarter: 2012Q4

REPORT INFORMATION
  Report Type: 
  Country: US (occurrence: US)
  Receive Date: 20121107
  Receipt Date: 20121107
  Transmission Date: 20130627
  Serious: No
  Sender: FDA-Public Use
  Company Number: US-AMGEN-USASP2011056443

PATIENT
  Sex: Female

DRUGS (5)
  1. ENBREL [Suspect]
     Indication: PRODUCT USED FOR UNKNOWN INDICATION
     Dosage: 50 mg, qwk
  2. NIFEDICAL XL [Concomitant]
     Dosage: 60 mg, UNK
  3. NIASPAN [Concomitant]
     Dosage: 500 mg, UNK
  4. FISH OIL [Concomitant]
  5. GABAPENTIN [Concomitant]
     Dosage: 100 mg, UNK

REACTIONS (2)
  - Urinary tract infection [Unknown]
  - Sinusitis [Unknown]
